FAERS Safety Report 22586867 (Version 1)
Quarter: 2023Q2

REPORT INFORMATION
  Report Type: Spontaneous
  Country: CA (occurrence: CA)
  Receive Date: 20230611
  Receipt Date: 20230611
  Transmission Date: 20230721
  Serious: Yes (Other)
  Sender: FDA-Public Use
  Company Number: CA-PFIZER INC-202300214976

PATIENT
  Sex: Male

DRUGS (1)
  1. TRASTUZUMAB [Suspect]
     Active Substance: TRASTUZUMAB
     Indication: Breast cancer male
     Dosage: 335 MG, 1 EVERY 4 WEEKS
     Route: 042

REACTIONS (2)
  - Deep vein thrombosis [Unknown]
  - Off label use [Unknown]
